FAERS Safety Report 24437247 (Version 1)
Quarter: 2024Q4

REPORT INFORMATION
  Report Type: Spontaneous
  Country: US (occurrence: None)
  Receive Date: 20241011
  Receipt Date: 20241011
  Transmission Date: 20250115
  Serious: Yes (Hospitalization)
  Sender: Public
  Company Number: None

PATIENT
  Age: 63 Year
  Sex: Male
  Weight: 79 kg

DRUGS (3)
  1. SEMGLEE (INSULIN GLARGINE) [Suspect]
     Active Substance: INSULIN GLARGINE
     Indication: Diabetes mellitus
     Dosage: FREQUENCY : AT BEDTIME;?
     Route: 058
  2. ACARBOSE [Suspect]
     Active Substance: ACARBOSE
  3. INSULIN ASPART [Suspect]
     Active Substance: INSULIN ASPART

REACTIONS (2)
  - Hypoglycaemia [None]
  - Dyspnoea [None]

NARRATIVE: CASE EVENT DATE: 20240606
